FAERS Safety Report 9271297 (Version 1)
Quarter: 2013Q2

REPORT INFORMATION
  Report Type: Spontaneous
  Country: DE (occurrence: DE)
  Receive Date: 20130506
  Receipt Date: 20130506
  Transmission Date: 20140414
  Serious: Yes (Other)
  Sender: FDA-Public Use
  Company Number: PHHY2013DE038665

PATIENT
  Sex: Female

DRUGS (2)
  1. SANDOSTATIN LAR [Suspect]
     Indication: BENIGN INTRACRANIAL HYPERTENSION
     Dosage: UNK UKN, UNK
  2. SANDOSTATIN LAR [Suspect]
     Indication: OFF LABEL USE

REACTIONS (4)
  - Loss of consciousness [Unknown]
  - Fall [Unknown]
  - Wrist fracture [Unknown]
  - Laceration [Unknown]
